FAERS Safety Report 22336196 (Version 1)
Quarter: 2023Q2

REPORT INFORMATION
  Report Type: Spontaneous
  Country: US (occurrence: None)
  Receive Date: 20230518
  Receipt Date: 20230518
  Transmission Date: 20230721
  Serious: No
  Sender: FDA-Public Use
  Company Number: US-ROCHE-3172715

PATIENT
  Sex: Male

DRUGS (2)
  1. ACTEMRA [Suspect]
     Active Substance: TOCILIZUMAB
     Indication: Lung disorder
     Dosage: DOSE: 162 MG/0.9 ML, ONGOING: YES
     Route: 058
     Dates: start: 20211009
  2. OFEV [Concomitant]
     Active Substance: NINTEDANIB

REACTIONS (2)
  - Off label use [Unknown]
  - No adverse event [Unknown]
